FAERS Safety Report 4414727-9 (Version None)
Quarter: 2004Q3

REPORT INFORMATION
  Report Type: 
  Country: None (occurrence: None)
  Receive Date: 20040804
  Receipt Date: 20030623
  Transmission Date: 20050211
  Serious: No
  Sender: FDA-Public Use
  Company Number: US-BRISTOL-MYERS SQUIBB COMPANY-12334025

PATIENT
  Age: 50 Year
  Sex: Female
  Weight: 110 kg

DRUGS (2)
  1. GLUCOVANCE [Suspect]
     Indication: BLOOD GLUCOSE INCREASED
     Route: 048
     Dates: start: 20030722
  2. PREDNISONE [Concomitant]
     Dosage: DURATION OF THERAPY:  ^4 TO 5 YEARS^

REACTIONS (2)
  - DIARRHOEA [None]
  - NAUSEA [None]
